FAERS Safety Report 21982504 (Version 1)
Quarter: 2023Q1

REPORT INFORMATION
  Report Type: Spontaneous
  Country: US (occurrence: US)
  Receive Date: 20230213
  Receipt Date: 20230213
  Transmission Date: 20230417
  Serious: No
  Sender: FDA-Public Use
  Company Number: US-STRIDES ARCOLAB LIMITED-2022SP009374

PATIENT
  Age: 31 Year
  Sex: Male

DRUGS (10)
  1. ETOPOSIDE [Suspect]
     Active Substance: ETOPOSIDE
     Indication: NUT midline carcinoma
     Dosage: 60 MILLIGRAM/SQ. METER, ON DAY 1 TO 5 AND DAY 29 TO 34, CYCLICAL
     Route: 065
  2. ETOPOSIDE [Suspect]
     Active Substance: ETOPOSIDE
     Dosage: 100 MILLIGRAM/SQ. METER, CYCLICAL, TWO ADDITIONAL CYCLES FOR 5 DAYS. A TOTAL OF 6000 CGY OF EXTERNAL
     Route: 065
  3. ADRIAMYCIN [Suspect]
     Active Substance: DOXORUBICIN HYDROCHLORIDE
     Indication: NUT midline carcinoma
     Dosage: UNK, EWING SARCOMA PROTOCOL, CYCLICAL
     Route: 065
     Dates: start: 201906
  4. ADRIAMYCIN [Suspect]
     Active Substance: DOXORUBICIN HYDROCHLORIDE
     Dosage: UNK, TWO ADDITIONAL CYCLES
     Route: 065
  5. CYCLOPHOSPHAMIDE [Suspect]
     Active Substance: CYCLOPHOSPHAMIDE
     Indication: NUT midline carcinoma
     Dosage: UNK, CYCLICAL, EWING SARCOMA PROTOCOL
     Route: 065
     Dates: start: 201906
  6. CYCLOPHOSPHAMIDE [Suspect]
     Active Substance: CYCLOPHOSPHAMIDE
     Dosage: UNK,  TWO ADDITIONAL CYCLES
     Route: 065
  7. IFOSFAMIDE [Suspect]
     Active Substance: IFOSFAMIDE
     Indication: NUT midline carcinoma
     Dosage: 1000 MILLIGRAM/SQ. METER, ON DAY 1 TO 5 AND DAY 29 TO 34
     Route: 065
  8. IFOSFAMIDE [Suspect]
     Active Substance: IFOSFAMIDE
     Dosage: 1800 MILLIGRAM/SQ. METER, TWO ADDITIONAL CYCLES FOR 5 DAYS. A TOTAL OF 6000 CGY OF EXTERNAL BEAM RAD
     Route: 065
  9. VINCRISTINE [Suspect]
     Active Substance: VINCRISTINE
     Indication: NUT midline carcinoma
     Dosage: UNK, CYCLICAL, EWING SARCOMA PROTOCOL
     Route: 065
  10. VINCRISTINE [Suspect]
     Active Substance: VINCRISTINE
     Dosage: UNK,  TWO ADDITIONAL CYCLES
     Route: 065

REACTIONS (3)
  - Asthenia [Unknown]
  - Fatigue [Unknown]
  - Off label use [Unknown]
